FAERS Safety Report 7449703-5 (Version None)
Quarter: 2011Q2

REPORT INFORMATION
  Report Type: 
  Country: None (occurrence: None)
  Receive Date: 20110421
  Receipt Date: 20110405
  Transmission Date: 20111010
  Serious: Yes (Hospitalization)
  Sender: FDA-Public Use
  Company Number: DSA_45241_2011

PATIENT
  Sex: Female

DRUGS (1)
  1. ENALAPRIL MALEATE [Suspect]
     Indication: HYPERTENSION
     Dosage: DF ORAL, HALF OF A 20 MG TABLET DAILY ORAL
     Route: 048
     Dates: start: 20070101

REACTIONS (7)
  - PAIN IN EXTREMITY [None]
  - ANAPHYLACTIC SHOCK [None]
  - OEDEMA PERIPHERAL [None]
  - PARESIS [None]
  - FEELING ABNORMAL [None]
  - SNAKE BITE [None]
  - PARAESTHESIA [None]
